FAERS Safety Report 24870107 (Version 1)
Quarter: 2025Q1

REPORT INFORMATION
  Report Type: Spontaneous
  Country: US (occurrence: US)
  Receive Date: 20250121
  Receipt Date: 20250121
  Transmission Date: 20250409
  Serious: No
  Sender: SANOFI AVENTIS
  Company Number: US-SA-2025SA017689

PATIENT
  Sex: Female
  Weight: 46.82 kg

DRUGS (1)
  1. CEREZYME [Suspect]
     Active Substance: IMIGLUCERASE
     Indication: Gaucher^s disease
     Dosage: 1600 MG, QOW
     Route: 042
     Dates: start: 201610

REACTIONS (1)
  - Weight decreased [Unknown]
